FAERS Safety Report 17942468 (Version 1)
Quarter: 2020Q2

REPORT INFORMATION
  Report Type: Spontaneous
  Country: HR (occurrence: HR)
  Receive Date: 20200625
  Receipt Date: 20200625
  Transmission Date: 20200714
  Serious: Yes (Hospitalization)
  Sender: FDA-Public Use
  Company Number: HR-TAKEDA-2020TUS027673

PATIENT
  Age: 57 Year
  Sex: Female

DRUGS (15)
  1. LORSILAN [Concomitant]
     Active Substance: LORAZEPAM
     Indication: PRODUCT USED FOR UNKNOWN INDICATION
     Dosage: UNK
     Route: 048
  2. MARTEFARIN [Concomitant]
     Active Substance: WARFARIN
     Indication: CEREBRAL INFARCTION
  3. MARTEFARIN [Concomitant]
     Active Substance: WARFARIN
     Indication: ATRIAL FLUTTER
  4. MIRAPEXIN [Interacting]
     Active Substance: PRAMIPEXOLE
     Indication: MOVEMENT DISORDER
  5. AMLODIPINE BESILATE W/INDAPAMIDE/PE/08715301/ [Concomitant]
     Indication: ESSENTIAL HYPERTENSION
     Dosage: UNK, QD
     Route: 048
  6. MADOPAR [Interacting]
     Active Substance: BENSERAZIDE HYDROCHLORIDE\LEVODOPA
     Indication: EXTRAPYRAMIDAL DISORDER
  7. MIRAPEXIN [Interacting]
     Active Substance: PRAMIPEXOLE
     Indication: EXTRAPYRAMIDAL DISORDER
     Dosage: UNK
     Route: 048
     Dates: start: 20190110
  8. BYOL COR [Concomitant]
     Active Substance: BISOPROLOL FUMARATE
     Indication: ESSENTIAL HYPERTENSION
  9. BYOL COR [Concomitant]
     Active Substance: BISOPROLOL FUMARATE
     Indication: ATRIAL FIBRILLATION
  10. BRINTELLIX [Suspect]
     Active Substance: VORTIOXETINE HYDROBROMIDE
     Indication: EXTRAPYRAMIDAL DISORDER
     Dosage: 10 MILLIGRAM, QD
     Route: 048
     Dates: start: 20190624
  11. MADOPAR [Interacting]
     Active Substance: BENSERAZIDE HYDROCHLORIDE\LEVODOPA
     Indication: MOVEMENT DISORDER
     Dosage: UNK
     Route: 048
     Dates: start: 20180924
  12. ZALDIAR [Concomitant]
     Active Substance: ACETAMINOPHEN\TRAMADOL HYDROCHLORIDE
     Indication: PRODUCT USED FOR UNKNOWN INDICATION
     Dosage: UNK
     Route: 048
  13. BYOL COR [Concomitant]
     Active Substance: BISOPROLOL FUMARATE
     Indication: ATRIAL FLUTTER
     Dosage: 1.25 MILLIGRAM, QD
     Route: 048
     Dates: start: 20200326
  14. MARTEFARIN [Concomitant]
     Active Substance: WARFARIN
     Indication: ATRIAL FIBRILLATION
     Dosage: 3 MILLIGRAM, QD
     Route: 048
     Dates: start: 20200604
  15. BRINTELLIX [Interacting]
     Active Substance: VORTIOXETINE HYDROBROMIDE
     Indication: MOVEMENT DISORDER

REACTIONS (5)
  - Product use in unapproved indication [Unknown]
  - Tendon rupture [Recovering/Resolving]
  - Myalgia [Recovering/Resolving]
  - Drug interaction [Unknown]
  - Muscle strain [Recovering/Resolving]

NARRATIVE: CASE EVENT DATE: 20200413
